FAERS Safety Report 24063224 (Version 5)
Quarter: 2024Q3

REPORT INFORMATION
  Report Type: Report from Study
  Country: US (occurrence: US)
  Receive Date: 20240709
  Receipt Date: 20240902
  Transmission Date: 20241017
  Serious: Yes (Other)
  Sender: ABBVIE
  Company Number: US-ABBVIE-5828249

PATIENT
  Sex: Female
  Weight: 91 kg

DRUGS (1)
  1. HUMIRA [Suspect]
     Active Substance: ADALIMUMAB
     Indication: Rheumatoid arthritis
     Route: 058
     Dates: start: 20220929, end: 20240524

REACTIONS (6)
  - Salivary gland calculus [Not Recovered/Not Resolved]
  - Swelling [Recovered/Resolved]
  - Erythema [Recovered/Resolved]
  - Glossodynia [Recovered/Resolved]
  - Feeling hot [Recovered/Resolved]
  - Salivary duct obstruction [Unknown]
